FAERS Safety Report 18463807 (Version 4)
Quarter: 2021Q1

REPORT INFORMATION
  Report Type: Spontaneous
  Country: US (occurrence: US)
  Receive Date: 20201104
  Receipt Date: 20210208
  Transmission Date: 20210419
  Serious: No
  Sender: FDA-Public Use
  Company Number: US-PFIZER INC-2020409714

PATIENT
  Age: 59 Year
  Sex: Female

DRUGS (1)
  1. XELJANZ [Suspect]
     Active Substance: TOFACITINIB CITRATE
     Dosage: 5 MG
     Dates: start: 202009

REACTIONS (6)
  - Condition aggravated [Unknown]
  - Nervous system disorder [Unknown]
  - Faeces discoloured [Unknown]
  - Abdominal pain [Unknown]
  - Myalgia [Unknown]
  - Gastric disorder [Unknown]

NARRATIVE: CASE EVENT DATE: 2020
